FAERS Safety Report 10195407 (Version 2)
Quarter: 2014Q2

REPORT INFORMATION
  Report Type: Spontaneous
  Country: US (occurrence: US)
  Receive Date: 20140526
  Receipt Date: 20140630
  Transmission Date: 20141212
  Serious: No
  Sender: FDA-Public Use
  Company Number: US-B.I. PHARMACEUTICALS,INC./RIDGEFIELD-2014-BI-21475BP

PATIENT
  Sex: Female

DRUGS (12)
  1. COMBIVENT [Suspect]
     Indication: MYCOBACTERIUM AVIUM COMPLEX INFECTION
     Dosage: 4 PUF
     Route: 055
     Dates: start: 2011
  2. SYMBICORT [Concomitant]
     Route: 055
  3. ALPRAZOLAM [Concomitant]
     Indication: ANXIETY
     Dosage: 1.5 MG
     Route: 065
  4. ACIPHEX [Concomitant]
     Indication: GASTROOESOPHAGEAL REFLUX DISEASE
     Dosage: 20 MG
     Route: 065
  5. CYMBALTA [Concomitant]
     Indication: DEPRESSION
     Dosage: 20 MG
     Route: 065
  6. CYMBALTA [Concomitant]
     Indication: AFFECTIVE DISORDER
  7. LEVOCETIRIZINE [Concomitant]
     Indication: HYPERSENSITIVITY
     Dosage: 5 MG
     Route: 065
  8. LOSARTAN/HCT [Concomitant]
     Indication: BLOOD PRESSURE
     Dosage: DOSE PER APPLICATION AND DAILY DOSE: 100/25 MG
     Route: 065
  9. LYRICA [Concomitant]
     Indication: NEUROPATHY PERIPHERAL
     Dosage: 225 MG
     Route: 065
  10. SINGULAIR [Concomitant]
     Indication: DYSPNOEA
     Dosage: 10 MG
     Route: 065
  11. SINGULAIR [Concomitant]
     Indication: HYPERSENSITIVITY
  12. NASONEX [Concomitant]
     Indication: HYPERSENSITIVITY
     Dosage: FORMULATION: SPRAY
     Route: 065

REACTIONS (5)
  - Candida infection [Not Recovered/Not Resolved]
  - Glossodynia [Not Recovered/Not Resolved]
  - Blister [Not Recovered/Not Resolved]
  - Oral pain [Not Recovered/Not Resolved]
  - Off label use [Unknown]
